FAERS Safety Report 4622090-3 (Version None)
Quarter: 2005Q1

REPORT INFORMATION
  Report Type: 
  Country: None (occurrence: None)
  Receive Date: 20050328
  Receipt Date: 20050311
  Transmission Date: 20050727
  Serious: Yes (Hospitalization)
  Sender: FDA-Public Use
  Company Number: EM2005-0132

PATIENT
  Age: 36 Year
  Sex: Male

DRUGS (4)
  1. PROLEUKIN [Suspect]
     Indication: HIV INFECTION
     Dosage: 7.5 QD, CONT IV INFUS
     Dates: start: 20021028, end: 20021101
  2. LAMIVUDINE [Concomitant]
  3. SAQUINAVIR (SAQUINAVIR) [Concomitant]
  4. D4T (STAVUDINE) [Concomitant]

REACTIONS (10)
  - ABDOMINAL DISTENSION [None]
  - ABSCESS [None]
  - BLADDER NECK OBSTRUCTION [None]
  - DYSURIA [None]
  - HAEMATURIA [None]
  - NAUSEA [None]
  - ORCHITIS [None]
  - PURULENCE [None]
  - SCROTAL SWELLING [None]
  - VOMITING [None]
